FAERS Safety Report 12465831 (Version 1)
Quarter: 2016Q2

REPORT INFORMATION
  Report Type: Spontaneous
  Country: ES (occurrence: ES)
  Receive Date: 20160614
  Receipt Date: 20160614
  Transmission Date: 20160815
  Serious: Yes (Hospitalization, Other)
  Sender: FDA-Public Use
  Company Number: ES-IMPAX LABORATORIES, INC-2016-IPXL-00615

PATIENT
  Age: 48 Year
  Sex: Female

DRUGS (1)
  1. OXYCODONE HYDROCHLORIDE. [Suspect]
     Active Substance: OXYCODONE HYDROCHLORIDE
     Indication: FIBROMYALGIA
     Dosage: UNK
     Route: 065

REACTIONS (7)
  - Mental disorder [Unknown]
  - Delusion [Unknown]
  - Weight decreased [Unknown]
  - Paranoid personality disorder [Unknown]
  - Insomnia [Unknown]
  - Suicide attempt [Unknown]
  - Depression [Unknown]
